FAERS Safety Report 6595603-2 (Version None)
Quarter: 2010Q1

REPORT INFORMATION
  Report Type: 
  Country: None (occurrence: None)
  Receive Date: 20100223
  Receipt Date: 20100215
  Transmission Date: 20100710
  Serious: Yes (Hospitalization)
  Sender: FDA-Public Use
  Company Number: GR-KINGPHARMUSA00001-K201000172

PATIENT
  Age: 66 Year
  Sex: Female

DRUGS (2)
  1. LEVOXYL [Suspect]
     Indication: THYROIDECTOMY
     Dosage: 150 MCG, QD
  2. CIPROFLOXACIN [Suspect]
     Indication: PYELONEPHRITIS ACUTE
     Dosage: 1000 MG, QD

REACTIONS (11)
  - BLISTER [None]
  - BURNING SENSATION [None]
  - DRUG INTERACTION [None]
  - FATIGUE [None]
  - OVERDOSE [None]
  - PAIN [None]
  - PYREXIA [None]
  - RASH ERYTHEMATOUS [None]
  - RASH MACULAR [None]
  - RASH PRURITIC [None]
  - STEVENS-JOHNSON SYNDROME [None]
